FAERS Safety Report 11069953 (Version 2)
Quarter: 2015Q2

REPORT INFORMATION
  Report Type: Report from Study
  Country: CA (occurrence: CA)
  Receive Date: 20150427
  Receipt Date: 20150520
  Transmission Date: 20150821
  Serious: Yes (Death, Other)
  Sender: FDA-Public Use
  Company Number: CA-ROCHE-1569028

PATIENT
  Age: 51 Year
  Sex: Female

DRUGS (6)
  1. SINGULAIR [Concomitant]
     Active Substance: MONTELUKAST SODIUM
  2. VENTOLINE [Concomitant]
     Active Substance: ALBUTEROL
  3. CITALOPRAM [Concomitant]
     Active Substance: CITALOPRAM HYDROBROMIDE
  4. XOLAIR [Suspect]
     Active Substance: OMALIZUMAB
     Indication: ASTHMA
     Route: 058
     Dates: start: 20150410
  5. PARIET [Concomitant]
     Active Substance: RABEPRAZOLE SODIUM
  6. SYMBICORT [Concomitant]
     Active Substance: BUDESONIDE\FORMOTEROL FUMARATE DIHYDRATE

REACTIONS (8)
  - Angina pectoris [Unknown]
  - Loss of consciousness [Unknown]
  - Agonal rhythm [Unknown]
  - Chest pain [Unknown]
  - Circulatory collapse [Unknown]
  - Chest discomfort [Unknown]
  - Myocardial infarction [Fatal]
  - Abdominal pain upper [Unknown]

NARRATIVE: CASE EVENT DATE: 20150419
